FAERS Safety Report 16439126 (Version 1)
Quarter: 2019Q2

REPORT INFORMATION
  Report Type: Spontaneous
  Country: RU (occurrence: RU)
  Receive Date: 20190617
  Receipt Date: 20190617
  Transmission Date: 20190711
  Serious: Yes (Hospitalization)
  Sender: FDA-Public Use
  Company Number: PHHY2019RU138466

PATIENT
  Sex: Female
  Weight: 55 kg

DRUGS (1)
  1. COSENTYX [Suspect]
     Active Substance: SECUKINUMAB
     Indication: PRODUCT USED FOR UNKNOWN INDICATION
     Dosage: 150 MG/ML, UNK
     Route: 030
     Dates: start: 20190530

REACTIONS (16)
  - Face oedema [Unknown]
  - Skin burning sensation [Unknown]
  - Asthenia [Unknown]
  - Skin tightness [Unknown]
  - Incorrect route of product administration [Unknown]
  - Dermatitis exfoliative generalised [Not Recovered/Not Resolved]
  - Body temperature increased [Recovering/Resolving]
  - Toxic epidermal necrolysis [Unknown]
  - Skin exfoliation [Recovering/Resolving]
  - Pain of skin [Unknown]
  - Chills [Recovering/Resolving]
  - General physical health deterioration [Unknown]
  - Hypotension [Recovering/Resolving]
  - Psoriasis [Unknown]
  - Skin toxicity [Unknown]
  - Heart rate increased [Recovering/Resolving]

NARRATIVE: CASE EVENT DATE: 20190530
